FAERS Safety Report 8504673-3 (Version None)
Quarter: 2012Q3

REPORT INFORMATION
  Report Type: 
  Country: None (occurrence: None)
  Receive Date: 20120711
  Receipt Date: 20120127
  Transmission Date: 20120928
  Serious: Yes (Death, Other)
  Sender: FDA-Public Use
  Company Number: US-ROCHE-1037256

PATIENT
  Sex: Female

DRUGS (3)
  1. ZELBORAF [Suspect]
     Indication: MALIGNANT MELANOMA
     Dates: start: 20110915
  2. ZELBORAF [Suspect]
  3. ZELBORAF [Suspect]
     Indication: BONE NEOPLASM MALIGNANT

REACTIONS (5)
  - LEUKOPENIA [None]
  - PAIN [None]
  - DEATH [None]
  - DISEASE PROGRESSION [None]
  - DIARRHOEA [None]
